FAERS Safety Report 22060785 (Version 1)
Quarter: 2023Q1

REPORT INFORMATION
  Report Type: Spontaneous
  Country: FR (occurrence: FR)
  Receive Date: 20230303
  Receipt Date: 20230303
  Transmission Date: 20230418
  Serious: Yes (Death)
  Sender: FDA-Public Use
  Company Number: None

PATIENT
  Age: 73 Year
  Sex: Male

DRUGS (15)
  1. APIXABAN [Interacting]
     Active Substance: APIXABAN
     Indication: Stent placement
     Dates: start: 20230117, end: 20230117
  2. CLOPIDOGREL [Interacting]
     Active Substance: CLOPIDOGREL BISULFATE
     Indication: Stent placement
     Dates: start: 20230117, end: 20230117
  3. HEPARIN [Interacting]
     Active Substance: HEPARIN SODIUM
     Indication: Stent placement
     Dates: start: 20230117, end: 20230117
  4. ASPIRIN [Interacting]
     Active Substance: ASPIRIN
     Indication: Stent placement
     Dosage: ACIDE ACETYLSALICYLIQUE
     Dates: start: 20230117, end: 20230117
  5. TICAGRELOR [Interacting]
     Active Substance: TICAGRELOR
     Indication: Stent placement
     Dates: start: 20230117, end: 20230117
  6. FUROSEMIDE [Concomitant]
     Active Substance: FUROSEMIDE
     Indication: Product used for unknown indication
     Dates: end: 20230117
  7. EZETIMIBE [Concomitant]
     Active Substance: EZETIMIBE
     Indication: Product used for unknown indication
     Dates: end: 20230117
  8. FINASTERIDE [Concomitant]
     Active Substance: FINASTERIDE
     Indication: Product used for unknown indication
     Dates: end: 20230117
  9. BISOPROLOL FUMARATE [Concomitant]
     Active Substance: BISOPROLOL FUMARATE
     Indication: Product used for unknown indication
     Dosage: BISOPROLOL (FUMARATE DE)
     Dates: end: 20230117
  10. LEVOTHYROXINE SODIUM [Concomitant]
     Active Substance: LEVOTHYROXINE SODIUM
     Indication: Product used for unknown indication
     Dates: end: 20230117
  11. SPIRONOLACTONE [Concomitant]
     Active Substance: SPIRONOLACTONE
     Indication: Product used for unknown indication
     Dates: end: 20230117
  12. ATORVASTATIN [Concomitant]
     Active Substance: ATORVASTATIN
     Indication: Product used for unknown indication
     Dates: end: 20230117
  13. IRBESARTAN [Concomitant]
     Active Substance: IRBESARTAN
     Indication: Product used for unknown indication
     Dates: end: 20230117
  14. DAPAGLIFLOZINE PROPANEDIOL MONOHYDRATE [Concomitant]
     Indication: Product used for unknown indication
     Dates: end: 20230117
  15. RABEPRAZOLE [Concomitant]
     Active Substance: RABEPRAZOLE
     Indication: Product used for unknown indication
     Dates: end: 20230117

REACTIONS (2)
  - Haemorrhagic stroke [Fatal]
  - Drug interaction [Fatal]

NARRATIVE: CASE EVENT DATE: 20230117
